FAERS Safety Report 7421574-2 (Version None)
Quarter: 2011Q2

REPORT INFORMATION
  Report Type: 
  Country: None (occurrence: None)
  Receive Date: 20110418
  Receipt Date: 20110406
  Transmission Date: 20111010
  Serious: Yes (Other)
  Sender: FDA-Public Use
  Company Number: PHEH2006US00794

PATIENT
  Sex: Male

DRUGS (2)
  1. ZOMETA [Suspect]
  2. AREDIA [Suspect]

REACTIONS (9)
  - EMOTIONAL DISTRESS [None]
  - PAIN [None]
  - CEREBRAL ATROPHY [None]
  - BONE LESION [None]
  - OSTEOPENIA [None]
  - OSTEONECROSIS OF JAW [None]
  - LIFE EXPECTANCY SHORTENED [None]
  - EATING DISORDER [None]
  - SPINAL COMPRESSION FRACTURE [None]
